FAERS Safety Report 10647739 (Version 1)
Quarter: 2014Q4

REPORT INFORMATION
  Report Type: Spontaneous
  Country: IT (occurrence: IT)
  Receive Date: 20141212
  Receipt Date: 20141212
  Transmission Date: 20150529
  Serious: Yes (Hospitalization)
  Sender: FDA-Public Use
  Company Number: IT-BRISTOL-MYERS SQUIBB COMPANY-BMS-2014-000176

PATIENT

DRUGS (3)
  1. TRIATEC                            /00885601/ [Concomitant]
     Active Substance: RAMIPRIL
     Dosage: 1 DF, UNK
  2. CONGESCOR [Concomitant]
     Active Substance: BISOPROLOL
  3. COUMADIN [Suspect]
     Active Substance: WARFARIN SODIUM
     Indication: ATRIAL FIBRILLATION
     Dosage: 1 DF, QD
     Route: 048
     Dates: start: 20140101, end: 20141115

REACTIONS (2)
  - Rib fracture [Unknown]
  - Subarachnoid haemorrhage [Unknown]
